FAERS Safety Report 6440072-6 (Version None)
Quarter: 2009Q4

REPORT INFORMATION
  Report Type: 
  Country: None (occurrence: None)
  Receive Date: 20091113
  Receipt Date: 20091104
  Transmission Date: 20100525
  Serious: Yes (Hospitalization)
  Sender: FDA-Public Use
  Company Number: US-JNJFOC-20091101540

PATIENT
  Age: 15 Year
  Sex: Male

DRUGS (6)
  1. REMICADE [Suspect]
     Route: 042
  2. REMICADE [Suspect]
     Indication: INFLAMMATORY BOWEL DISEASE
     Route: 042
  3. MESALAZINE (5-ASA) [Concomitant]
  4. FISH OIL [Concomitant]
  5. VSL3 [Concomitant]
  6. ROWASA [Concomitant]

REACTIONS (1)
  - COLITIS [None]
